FAERS Safety Report 4322463-2 (Version None)
Quarter: 2004Q1

REPORT INFORMATION
  Report Type: 
  Country: None (occurrence: None)
  Receive Date: 20040319
  Receipt Date: 20040308
  Transmission Date: 20041129
  Serious: Yes (Hospitalization, Other)
  Sender: FDA-Public Use
  Company Number: UK068672

PATIENT
  Age: 55 Year
  Sex: Female

DRUGS (1)
  1. NEUPOGEN [Suspect]
     Indication: BLOOD STEM CELL HARVEST
     Dosage: 5 MCG/KG/D, 1 IN 1 DAYS
     Dates: start: 20020921, end: 20020925

REACTIONS (20)
  - ABDOMINAL PAIN [None]
  - ANTINUCLEAR ANTIBODY POSITIVE [None]
  - AORTITIS [None]
  - BACK PAIN [None]
  - CHOLESTASIS [None]
  - CYTOLYTIC HEPATITIS [None]
  - CYTOMEGALOVIRUS ANTIBODY POSITIVE [None]
  - HAEMATURIA [None]
  - INFLAMMATION [None]
  - LEUKOCYTOSIS [None]
  - LEUKOCYTURIA [None]
  - NEUTROPENIA [None]
  - PHYSICAL EXAMINATION ABNORMAL [None]
  - PYREXIA [None]
  - PYURIA [None]
  - RHEUMATOID FACTOR POSITIVE [None]
  - SCAN ABDOMEN ABNORMAL [None]
  - ULTRASOUND DOPPLER ABNORMAL [None]
  - VASCULAR STENOSIS [None]
  - VOMITING [None]
